FAERS Safety Report 6221460-X (Version None)
Quarter: 2009Q2

REPORT INFORMATION
  Report Type: 
  Country: None (occurrence: None)
  Receive Date: 20090610
  Receipt Date: 20090528
  Transmission Date: 20091009
  Serious: Yes (Hospitalization)
  Sender: FDA-Public Use
  Company Number: IT-ELI_LILLY_AND_COMPANY-IT200905005763

PATIENT
  Sex: Female

DRUGS (2)
  1. HUMALOG [Suspect]
     Indication: DIABETES MELLITUS
     Dosage: 44 D/F, DAILY (1/D)
     Route: 058
     Dates: start: 20080101, end: 20090423
  2. LASIX [Concomitant]
     Indication: CARDIOMYOPATHY
     Dosage: 2 D/F, UNK
     Route: 048
     Dates: start: 20080101, end: 20090423

REACTIONS (4)
  - CHEST PAIN [None]
  - HYPERHIDROSIS [None]
  - HYPOGLYCAEMIA [None]
  - MALAISE [None]
